FAERS Safety Report 25850400 (Version 3)
Quarter: 2025Q4

REPORT INFORMATION
  Report Type: Report from Study
  Country: CA (occurrence: CA)
  Receive Date: 20250926
  Receipt Date: 20251122
  Transmission Date: 20260117
  Serious: Yes (Hospitalization)
  Sender: CELLTRION
  Company Number: CA-CELLTRION INC.-2025CA034248

PATIENT

DRUGS (2)
  1. USTEKINUMAB [Suspect]
     Active Substance: USTEKINUMAB
     Indication: Psoriasis
     Dosage: 45 MG (1 SYRINGE) EVERY 12 WEEKS
     Route: 058
     Dates: start: 20250517
  2. USTEKINUMAB [Suspect]
     Active Substance: USTEKINUMAB
     Dosage: 45 MG (1 SYRINGE) EVERY 12 WEEKS
     Route: 058
     Dates: start: 20250808

REACTIONS (5)
  - Anaemia [Not Recovered/Not Resolved]
  - Renal disorder [Not Recovered/Not Resolved]
  - Hospitalisation [Unknown]
  - Product distribution issue [Unknown]
  - Therapy interrupted [Unknown]

NARRATIVE: CASE EVENT DATE: 20251107
